FAERS Safety Report 9417045 (Version 1)
Quarter: 2013Q3

REPORT INFORMATION
  Report Type: Spontaneous
  Country: US (occurrence: None)
  Receive Date: 20130722
  Receipt Date: 20130722
  Transmission Date: 20140515
  Serious: Yes (Death, Other)
  Sender: FDA-Public Use
  Company Number: DAV-AE-13-09

PATIENT
  Age: 10 Year
  Sex: Female
  Weight: 44.5 kg

DRUGS (4)
  1. DIAZEPAM [Suspect]
     Indication: MUSCLE SPASMS
     Dosage: 2-4MG Q4H PRN, PO (1 DOSE)
     Route: 048
  2. MULTIVITAMIN [Concomitant]
  3. BUDESONIDE INHALER [Concomitant]
  4. CODEINE: 20-40 MG [Concomitant]

REACTIONS (4)
  - Toxicity to various agents [None]
  - Peripheral coldness [None]
  - Unresponsive to stimuli [None]
  - Pulmonary oedema [None]
